FAERS Safety Report 4735800-1 (Version None)
Quarter: 2005Q3

REPORT INFORMATION
  Report Type: 
  Country: None (occurrence: None)
  Receive Date: 20050721
  Receipt Date: 20050428
  Transmission Date: 20060218
  Serious: No
  Sender: FDA-Public Use
  Company Number: 2005SP000442

PATIENT
  Age: 62 Year
  Sex: Female

DRUGS (1)
  1. LUNESTA [Suspect]
     Dosage: 2 MG;QD;ORAL
     Route: 048
     Dates: start: 20050414

REACTIONS (2)
  - DEPRESSION [None]
  - SWELLING FACE [None]
